FAERS Safety Report 6295218-X (Version None)
Quarter: 2009Q3

REPORT INFORMATION
  Report Type: 
  Country: None (occurrence: None)
  Receive Date: 20090803
  Receipt Date: 20090728
  Transmission Date: 20100115
  Serious: Yes (Hospitalization)
  Sender: FDA-Public Use
  Company Number: PHHO2009US09029

PATIENT
  Sex: Male
  Weight: 76 kg

DRUGS (3)
  1. RAD 666 RAD+TAB+PTR [Suspect]
     Indication: HEART TRANSPLANT
     Dosage: 1.5 MG, BID
     Route: 048
     Dates: start: 20071010
  2. RAD 666 RAD+TAB+PTR [Suspect]
     Dosage: 1.25 MG, BID
     Route: 048
     Dates: start: 20071101
  3. RAD 666 RAD+TAB+PTR [Suspect]
     Dosage: 1 MG, BID
     Route: 048
     Dates: start: 20090624

REACTIONS (3)
  - CARDIAC FAILURE CONGESTIVE [None]
  - FLUID OVERLOAD [None]
  - HAEMATOCRIT DECREASED [None]
